FAERS Safety Report 11613084 (Version 5)
Quarter: 2015Q4

REPORT INFORMATION
  Report Type: Spontaneous
  Country: US (occurrence: US)
  Receive Date: 20151008
  Receipt Date: 20151215
  Transmission Date: 20160304
  Serious: Yes (Other)
  Sender: FDA-Public Use
  Company Number: US-JNJFOC-20150911647

PATIENT
  Age: 70 Year
  Sex: Female
  Weight: 40.82 kg

DRUGS (7)
  1. REMICADE [Suspect]
     Active Substance: INFLIXIMAB
     Indication: CROHN^S DISEASE
     Dosage: 250 ML EVERY 7.5 WEEKS. 5TH INFUSION
     Route: 042
     Dates: start: 20150911, end: 20150911
  2. TUMS [Concomitant]
     Active Substance: CALCIUM CARBONATE
     Indication: ABDOMINAL DISCOMFORT
     Route: 065
     Dates: start: 20101210
  3. TRAMADOL. [Concomitant]
     Active Substance: TRAMADOL
     Indication: PAIN
     Route: 065
     Dates: start: 20140912
  4. REMICADE [Suspect]
     Active Substance: INFLIXIMAB
     Indication: CROHN^S DISEASE
     Dosage: ^2 LITTLE VIALS^
     Route: 042
     Dates: start: 20150421
  5. CLONAZEPAM. [Concomitant]
     Active Substance: CLONAZEPAM
     Indication: ANXIETY
     Route: 065
     Dates: start: 20101009
  6. REMICADE [Suspect]
     Active Substance: INFLIXIMAB
     Indication: CROHN^S DISEASE
     Dosage: ^2 LITTLE VIALS^
     Route: 042
     Dates: start: 20150721
  7. PEPTO-BISMOL [Concomitant]
     Active Substance: BISMUTH SUBSALICYLATE\CALCIUM CARBONATE
     Indication: ABDOMINAL DISCOMFORT
     Route: 065
     Dates: start: 20150310

REACTIONS (7)
  - Urticaria [Recovered/Resolved]
  - Drug ineffective [Unknown]
  - Eating disorder [Unknown]
  - Drug specific antibody present [Not Recovered/Not Resolved]
  - Therapeutic response decreased [Unknown]
  - Crohn^s disease [Not Recovered/Not Resolved]
  - Infusion related reaction [Recovered/Resolved]

NARRATIVE: CASE EVENT DATE: 201504
